FAERS Safety Report 4569432-5 (Version None)
Quarter: 2005Q1

REPORT INFORMATION
  Report Type: 
  Country: None (occurrence: None)
  Receive Date: 20050201
  Receipt Date: 20050117
  Transmission Date: 20050727
  Serious: Yes (Hospitalization)
  Sender: FDA-Public Use
  Company Number: 2005BI001152

PATIENT
  Age: 44 Year
  Sex: Male
  Weight: 68.0396 kg

DRUGS (2)
  1. AVONEX [Suspect]
     Indication: MULTIPLE SCLEROSIS
     Dosage: 30 UG; QW; IM
     Route: 030
     Dates: start: 19980101, end: 20040801
  2. AVONEX [Suspect]
     Indication: MULTIPLE SCLEROSIS
     Dosage: 30 UG; QW; IM
     Route: 030
     Dates: start: 20040801

REACTIONS (7)
  - ABDOMINAL INFECTION [None]
  - DRUG DELIVERY DEVICE IMPLANTATION [None]
  - FREQUENT BOWEL MOVEMENTS [None]
  - MEDICAL DEVICE COMPLICATION [None]
  - MUSCLE ATROPHY [None]
  - POLLAKIURIA [None]
  - STAPHYLOCOCCAL INFECTION [None]
